FAERS Safety Report 12080380 (Version 1)
Quarter: 2016Q1

REPORT INFORMATION
  Report Type: Spontaneous
  Country: FR (occurrence: FR)
  Receive Date: 20160216
  Receipt Date: 20160216
  Transmission Date: 20160526
  Serious: Yes (Hospitalization, Other)
  Sender: FDA-Public Use
  Company Number: FR-PFIZER INC-2014335581

PATIENT
  Age: 7 Decade
  Sex: Female
  Weight: 90 kg

DRUGS (3)
  1. ELIQUIS [Interacting]
     Active Substance: APIXABAN
     Indication: EMBOLISM VENOUS
     Dosage: 2.5 MG, 2X/DAY
     Route: 048
     Dates: start: 20141024, end: 20141124
  2. FRAGMINE [Suspect]
     Active Substance: DALTEPARIN SODIUM
     Dosage: 4500 IU, UNK
     Route: 058
     Dates: start: 20141031, end: 20141124
  3. LOVENOX [Interacting]
     Active Substance: ENOXAPARIN SODIUM
     Dosage: 0.4 ML, UNK
     Route: 058
     Dates: end: 20141125

REACTIONS (3)
  - Drug interaction [Unknown]
  - Off label use [Unknown]
  - Joint arthroplasty [Unknown]

NARRATIVE: CASE EVENT DATE: 2014
